FAERS Safety Report 6463849-X (Version None)
Quarter: 2009Q4

REPORT INFORMATION
  Report Type: 
  Country: None (occurrence: None)
  Receive Date: 20091201
  Receipt Date: 20091119
  Transmission Date: 20100525
  Serious: Yes (Hospitalization, Other)
  Sender: FDA-Public Use
  Company Number: US-ROCHE-644990

PATIENT
  Sex: Female

DRUGS (3)
  1. PEGASYS [Suspect]
     Indication: HEPATITIS C
     Dosage: FORM: PRE-FILLED SYRINGE
     Route: 065
     Dates: start: 20090217
  2. COPEGUS [Suspect]
     Indication: HEPATITIS C
     Dosage: DIVIDED DOSES.
     Route: 065
     Dates: start: 20090217
  3. INSULIN [Concomitant]

REACTIONS (9)
  - ABSCESS [None]
  - ALOPECIA [None]
  - FEELING ABNORMAL [None]
  - MALAISE [None]
  - PYREXIA [None]
  - STAPHYLOCOCCAL SKIN INFECTION [None]
  - VISUAL ACUITY REDUCED [None]
  - VOMITING [None]
  - WEIGHT DECREASED [None]
